FAERS Safety Report 23735605 (Version 1)
Quarter: 2024Q2

REPORT INFORMATION
  Report Type: Other
  Country: AR (occurrence: AR)
  Receive Date: 20240412
  Receipt Date: 20240412
  Transmission Date: 20240716
  Serious: Yes (Hospitalization)
  Sender: FDA-Public Use
  Company Number: AR-B.Braun Medical Inc.-2155498

PATIENT
  Age: 69 Year
  Sex: Female

DRUGS (1)
  1. HEPARIN SODIUM IN DEXTROSE [Suspect]
     Active Substance: HEPARIN SODIUM
     Indication: Anticoagulant therapy

REACTIONS (1)
  - Bullous haemorrhagic dermatosis [Recovered/Resolved]
